FAERS Safety Report 7468199-0 (Version None)
Quarter: 2011Q2

REPORT INFORMATION
  Report Type: 
  Country: None (occurrence: None)
  Receive Date: 20110509
  Receipt Date: 20110426
  Transmission Date: 20111010
  Serious: Yes (Other)
  Sender: FDA-Public Use
  Company Number: FR-JNJFOC-20110500704

PATIENT

DRUGS (8)
  1. LORAZEPAM [Concomitant]
     Indication: RESTLESSNESS
     Route: 065
  2. LORAZEPAM [Concomitant]
     Indication: IRRITABILITY
     Route: 065
  3. ANTI-PARKINSONIAN DRUGS [Concomitant]
     Indication: EXTRAPYRAMIDAL DISORDER
     Route: 065
  4. VALPROIC ACID [Suspect]
     Indication: BIPOLAR I DISORDER
     Route: 065
  5. LORAZEPAM [Concomitant]
     Indication: INSOMNIA
     Route: 065
  6. HALOPERIDOL [Suspect]
     Indication: BIPOLAR I DISORDER
     Dosage: 5-15 MG/DAY
     Route: 065
  7. LORAZEPAM [Concomitant]
     Indication: HOSTILITY
     Route: 065
  8. LORAZEPAM [Concomitant]
     Indication: AGITATION
     Route: 065

REACTIONS (1)
  - BLOOD POTASSIUM ABNORMAL [None]
